FAERS Safety Report 16350742 (Version 1)
Quarter: 2019Q2

REPORT INFORMATION
  Report Type: Spontaneous
  Country: ES (occurrence: ES)
  Receive Date: 20190524
  Receipt Date: 20190524
  Transmission Date: 20190711
  Serious: Yes (Other)
  Sender: FDA-Public Use
  Company Number: ES-AUROBINDO-AUR-APL-2019-028914

PATIENT

DRUGS (1)
  1. PAROXETINE 20MG FILM-COATED TABLETS [Suspect]
     Active Substance: PAROXETINE
     Indication: PERSISTENT DEPRESSIVE DISORDER
     Dosage: 20 MILLIGRAM, DAILY
     Route: 048
     Dates: start: 20190313, end: 20190317

REACTIONS (1)
  - VIth nerve paralysis [Not Recovered/Not Resolved]

NARRATIVE: CASE EVENT DATE: 20190317
